FAERS Safety Report 9759817 (Version 1)
Quarter: 2013Q4

REPORT INFORMATION
  Report Type: Spontaneous
  Country: IT (occurrence: None)
  Receive Date: 20131212
  Receipt Date: 20131212
  Transmission Date: 20140711
  Serious: Yes (Hospitalization)
  Sender: FDA-Public Use
  Company Number: AUR-APL-2013-10414

PATIENT
  Age: 59 Year
  Sex: Female

DRUGS (2)
  1. AMOXICILLIN (AMOXICILLIN) [Suspect]
     Indication: DENTAL CARE
     Dosage: 2 GMS , 1 DAY.
     Route: 048
     Dates: start: 20131025, end: 20131030
  2. DELTACORTENE (PREDNISONE) [Concomitant]

REACTIONS (3)
  - Rash [None]
  - Tongue oedema [None]
  - Urticaria [None]
